FAERS Safety Report 6229977-9 (Version None)
Quarter: 2009Q2

REPORT INFORMATION
  Report Type: 
  Country: None (occurrence: None)
  Receive Date: 20090615
  Receipt Date: 20090601
  Transmission Date: 20091009
  Serious: Yes (Death, Hospitalization, Disabling)
  Sender: FDA-Public Use
  Company Number: US-MYLANLABS-2009S1009577

PATIENT
  Age: 50 Year
  Sex: Male

DRUGS (5)
  1. BUSULFAN [Suspect]
     Indication: STEM CELL TRANSPLANT
     Dates: start: 20060101
  2. CYCLOPHOSPHAMIDE [Suspect]
     Indication: STEM CELL TRANSPLANT
     Dates: start: 20060101
  3. ALEMTUZUMAB [Suspect]
     Indication: PROPHYLAXIS AGAINST GRAFT VERSUS HOST DISEASE
     Dosage: TOTAL DOSE = 60MG
     Route: 042
  4. TACROLIMUS [Suspect]
     Indication: PROPHYLAXIS AGAINST GRAFT VERSUS HOST DISEASE
  5. METHOTREXATE [Suspect]
     Indication: PROPHYLAXIS AGAINST GRAFT VERSUS HOST DISEASE

REACTIONS (1)
  - POLYOMAVIRUS-ASSOCIATED NEPHROPATHY [None]
